FAERS Safety Report 12763860 (Version 2)
Quarter: 2016Q3

REPORT INFORMATION
  Report Type: Spontaneous
  Country: ES (occurrence: ES)
  Receive Date: 20160920
  Receipt Date: 20160928
  Transmission Date: 20161109
  Serious: Yes (Hospitalization)
  Sender: FDA-Public Use
  Company Number: ES-PFIZER INC-2016438765

PATIENT
  Age: 71 Year
  Sex: Male

DRUGS (10)
  1. BISOPROLOL [Interacting]
     Active Substance: BISOPROLOL
     Indication: ATRIAL FIBRILLATION
     Dosage: 5 MG, DAILY
     Route: 048
     Dates: start: 20151031, end: 20160229
  2. EPLERENONE. [Interacting]
     Active Substance: EPLERENONE
     Indication: HYPERALDOSTERONISM
     Dosage: 50 MG, 3X/DAY
     Route: 048
     Dates: start: 20150514, end: 2016
  3. AMLODIPINE BESILATE [Interacting]
     Active Substance: AMLODIPINE BESYLATE
     Indication: HYPERTENSION
     Dosage: 10 MG, DAILY
     Route: 048
     Dates: start: 20151031, end: 20160229
  4. BENICAR [Interacting]
     Active Substance: OLMESARTAN MEDOXOMIL
     Indication: HYPERTENSION
     Dosage: 40 MG, DAILY
     Route: 048
     Dates: start: 20150514
  5. FUROSEMIDE. [Interacting]
     Active Substance: FUROSEMIDE
     Indication: HYPERTENSION
     Dosage: 80 MG, DAILY
     Route: 048
     Dates: start: 20150514, end: 2016
  6. EPLERENONE. [Interacting]
     Active Substance: EPLERENONE
     Dosage: UNK
     Route: 065
     Dates: start: 2016
  7. FUROSEMIDE. [Interacting]
     Active Substance: FUROSEMIDE
     Dosage: UNK
     Route: 048
     Dates: start: 2016
  8. SINTROM [Concomitant]
     Active Substance: ACENOCOUMAROL
     Indication: ATRIAL FIBRILLATION
     Dosage: UNK
     Dates: start: 19950501
  9. TRANGOREX [Suspect]
     Active Substance: AMIODARONE HYDROCHLORIDE
     Indication: ATRIAL FIBRILLATION
     Dosage: 200 MG, DAILY
     Route: 048
     Dates: start: 20151031, end: 20160229
  10. SINTROM [Concomitant]
     Active Substance: ACENOCOUMAROL
     Indication: CARDIOMYOPATHY

REACTIONS (4)
  - Bradycardia [Recovered/Resolved]
  - Atrioventricular block [Recovered/Resolved]
  - Drug interaction [Recovered/Resolved]
  - Acute kidney injury [Recovered/Resolved]

NARRATIVE: CASE EVENT DATE: 20160228
